FAERS Safety Report 4623643-9 (Version None)
Quarter: 2005Q1

REPORT INFORMATION
  Report Type: 
  Country: None (occurrence: None)
  Receive Date: 20050330
  Receipt Date: 20050321
  Transmission Date: 20050727
  Serious: Yes (Other)
  Sender: FDA-Public Use
  Company Number: 002#4#2005-00084

PATIENT
  Age: 73 Year
  Sex: Male

DRUGS (2)
  1. TRILYTE-WITH-FLAVOR-PACKS (POLYETHYLENE GLYCOL 335 BISACODYL) [Suspect]
     Indication: COLONOSCOPY
     Dosage: 1 ONCE; ORAL
     Route: 048
  2. BISACODYL [Suspect]
     Indication: COLONOSCOPY
     Dosage: 3 IN 1 ONCE,

REACTIONS (2)
  - COLITIS ISCHAEMIC [None]
  - HAEMORRHAGE [None]
